FAERS Safety Report 25911138 (Version 1)
Quarter: 2025Q4

REPORT INFORMATION
  Report Type: Spontaneous
  Country: US (occurrence: US)
  Receive Date: 20251013
  Receipt Date: 20251013
  Transmission Date: 20260118
  Serious: Yes (Other)
  Sender: CHEPLAPHARM
  Company Number: US-CHEPLA-2025011635

PATIENT

DRUGS (5)
  1. OLANZAPINE [Suspect]
     Active Substance: OLANZAPINE
     Dosage: FOR 10 MONTHS
     Dates: start: 201710, end: 202011
  2. OLANZAPINE [Suspect]
     Active Substance: OLANZAPINE
     Dosage: FOR 2 YEARS
     Dates: start: 201710, end: 202011
  3. QUETIAPINE [Suspect]
     Active Substance: QUETIAPINE
  4. RISPERIDONE [Suspect]
     Active Substance: RISPERIDONE
  5. LITHIUM [Suspect]
     Active Substance: LITHIUM

REACTIONS (16)
  - Renal impairment [Unknown]
  - Dehydration [Unknown]
  - Constipation [Unknown]
  - Cognitive disorder [Unknown]
  - Memory impairment [Unknown]
  - Mobility decreased [Unknown]
  - Coordination abnormal [Unknown]
  - Balance disorder [Unknown]
  - Insomnia [Unknown]
  - Terminal insomnia [Unknown]
  - Musculoskeletal stiffness [Unknown]
  - Tremor [Unknown]
  - Speech disorder [Unknown]
  - Dry mouth [Unknown]
  - Dysphagia [Unknown]
  - Visual impairment [Unknown]
